FAERS Safety Report 10938273 (Version 2)
Quarter: 2015Q2

REPORT INFORMATION
  Report Type: Spontaneous
  Country: US (occurrence: US)
  Receive Date: 20150321
  Receipt Date: 20150525
  Transmission Date: 20150821
  Serious: No
  Sender: FDA-Public Use
  Company Number: US-JNJFOC-20120503621

PATIENT
  Age: 34 Year
  Sex: Male

DRUGS (2)
  1. LOCOID LIPOCREAM [Concomitant]
     Active Substance: HYDROCORTISONE BUTYRATE
     Indication: PRODUCT USED FOR UNKNOWN INDICATION
     Dosage: BID TO AA
     Route: 061
     Dates: start: 20120311, end: 20120402
  2. STELARA [Suspect]
     Active Substance: USTEKINUMAB
     Indication: PSORIASIS
     Route: 058
     Dates: start: 20120402

REACTIONS (11)
  - Low density lipoprotein increased [Unknown]
  - Muscle spasms [Recovered/Resolved]
  - Agitation [Recovered/Resolved]
  - Mood swings [Unknown]
  - Abdominal pain [Recovered/Resolved]
  - Headache [Recovered/Resolved]
  - Psychomotor hyperactivity [Unknown]
  - Arthralgia [Recovered/Resolved]
  - Dyspnoea [Recovered/Resolved]
  - Confusional state [Recovered/Resolved]
  - Depression [Recovered/Resolved]

NARRATIVE: CASE EVENT DATE: 201204
